FAERS Safety Report 4451184-0 (Version None)
Quarter: 2004Q3

REPORT INFORMATION
  Report Type: 
  Country: None (occurrence: None)
  Receive Date: 20040915
  Receipt Date: 20040915
  Transmission Date: 20050211
  Serious: Yes (Other)
  Sender: FDA-Public Use
  Company Number: None

PATIENT
  Age: 23 Year
  Sex: Female
  Weight: 63.5036 kg

DRUGS (9)
  1. TRAZODONE HCL [Suspect]
     Indication: BORDERLINE PERSONALITY DISORDER
     Dosage: 50 MG 1 - 3 PO QHS PRN SLEEP
     Route: 048
     Dates: start: 20040427, end: 20040622
  2. TRAZODONE HCL [Suspect]
     Indication: MAJOR DEPRESSION
     Dosage: 50 MG 1 - 3 PO QHS PRN SLEEP
     Route: 048
     Dates: start: 20040427, end: 20040622
  3. TRAZODONE HCL [Suspect]
     Indication: BORDERLINE PERSONALITY DISORDER
     Dosage: 50 MG 1 - 3 PO QHS PRN SLEEP
     Route: 048
     Dates: start: 20040817, end: 20040914
  4. TRAZODONE HCL [Suspect]
     Indication: MAJOR DEPRESSION
     Dosage: 50 MG 1 - 3 PO QHS PRN SLEEP
     Route: 048
     Dates: start: 20040817, end: 20040914
  5. TRAZODONE HCL [Suspect]
     Indication: BORDERLINE PERSONALITY DISORDER
     Dosage: 50 MG 1 - 3 PO QHS PRN SLEEP
     Route: 048
     Dates: start: 20040330
  6. TRAZODONE HCL [Suspect]
     Indication: MAJOR DEPRESSION
     Dosage: 50 MG 1 - 3 PO QHS PRN SLEEP
     Route: 048
     Dates: start: 20040330
  7. WELLBUTRIN XL [Concomitant]
  8. EFFEXOR XR [Concomitant]
  9. LORAZEPAM [Concomitant]

REACTIONS (2)
  - MIGRAINE [None]
  - PHARMACEUTICAL PRODUCT COMPLAINT [None]
